FAERS Safety Report 5356763-4 (Version None)
Quarter: 2007Q2

REPORT INFORMATION
  Report Type: 
  Country: None (occurrence: None)
  Receive Date: 20070614
  Receipt Date: 20060516
  Transmission Date: 20071010
  Serious: No
  Sender: FDA-Public Use
  Company Number: US-ASTRAZENECA-2006UW09533

PATIENT
  Age: 28147 Day
  Sex: Female
  Weight: 57.6 kg

DRUGS (8)
  1. ATACAND [Suspect]
     Indication: BLOOD PRESSURE INCREASED
     Route: 048
     Dates: start: 20060502, end: 20060512
  2. ATACAND [Suspect]
     Route: 048
     Dates: start: 20060512
  3. TETRACYCLINE [Concomitant]
  4. LIBRAX [Concomitant]
  5. PRAVACHOL [Concomitant]
  6. ASPIRIN [Concomitant]
  7. EFFEREX [Concomitant]
  8. SPIRILACTONE [Concomitant]

REACTIONS (2)
  - BURNING SENSATION [None]
  - HEADACHE [None]
